FAERS Safety Report 5750006-5 (Version None)
Quarter: 2008Q2

REPORT INFORMATION
  Report Type: 
  Country: None (occurrence: None)
  Receive Date: 20080527
  Receipt Date: 20080515
  Transmission Date: 20081010
  Serious: Yes (Other)
  Sender: FDA-Public Use
  Company Number: JP-ELI_LILLY_AND_COMPANY-JP200803006029

PATIENT
  Sex: Female
  Weight: 35 kg

DRUGS (11)
  1. EVISTA [Suspect]
     Indication: SENILE OSTEOPOROSIS
     Dosage: 60 MG, DAILY (1/D)
     Route: 048
     Dates: start: 20070801, end: 20080124
  2. MOBIC [Concomitant]
     Indication: BACK PAIN
     Dosage: 1 D/F, DAILY (1/D)
     Route: 048
     Dates: start: 20070723, end: 20080124
  3. PREDNISOLONE [Concomitant]
     Indication: CHONDROCALCINOSIS PYROPHOSPHATE
     Dosage: 5 MG, DAILY (1/D)
     Route: 048
     Dates: start: 20070602
  4. NORVASC [Concomitant]
     Indication: HYPERTENSION
     Dosage: 5 MG, DAILY (1/D)
     Route: 048
     Dates: start: 20011002
  5. NU-LOTAN [Concomitant]
     Indication: HYPERTENSION
     Dosage: 50 MG, DAILY (1/D)
     Route: 048
     Dates: start: 20061218
  6. ALLOZYM [Concomitant]
     Indication: HYPERURICAEMIA
     Dosage: 100 MG, DAILY (1/D)
     Route: 048
     Dates: start: 20070323
  7. ALFAROL [Concomitant]
     Indication: SENILE OSTEOPOROSIS
     Dosage: 0.5 UG, DAILY (1/D)
     Route: 048
     Dates: start: 20070323
  8. FELBINAC [Concomitant]
     Indication: BACK PAIN
     Dosage: UNK, AS NEEDED
     Route: 062
     Dates: start: 20070323
  9. TAKEPRON [Concomitant]
     Indication: REFLUX OESOPHAGITIS
     Dosage: 30 MG, DAILY (1/D)
     Route: 048
     Dates: start: 20070602, end: 20080313
  10. PRAVASTATIN [Concomitant]
     Indication: HYPERLIPIDAEMIA
     Dosage: 10 MG, DAILY (1/D)
     Route: 048
     Dates: start: 20070724
  11. KAMAG G [Concomitant]
     Indication: CONSTIPATION
     Dosage: 1 G, DAILY (1/D)
     Route: 048
     Dates: start: 20070801

REACTIONS (3)
  - DEMENTIA [None]
  - FACE OEDEMA [None]
  - HYPOTHYROIDISM [None]
